FAERS Safety Report 10267678 (Version 1)
Quarter: 2014Q2

REPORT INFORMATION
  Report Type: Spontaneous
  Country: US (occurrence: US)
  Receive Date: 20140630
  Receipt Date: 20140630
  Transmission Date: 20141212
  Serious: No
  Sender: FDA-Public Use
  Company Number: US-PFIZER INC-2014178693

PATIENT
  Sex: Male

DRUGS (3)
  1. NEURONTIN [Suspect]
     Dosage: UNK
  2. OXYCODEINE [Concomitant]
     Indication: PAIN
     Dosage: 10 MG, UP TO 6 TIMES A DAY
  3. OXYCODEINE [Concomitant]
     Dosage: 10MG- 20MG ,DAILY

REACTIONS (2)
  - Drug ineffective [Unknown]
  - Drug intolerance [Unknown]
